FAERS Safety Report 4674469-1 (Version None)
Quarter: 2005Q2

REPORT INFORMATION
  Report Type: 
  Country: None (occurrence: None)
  Receive Date: 20050526
  Receipt Date: 20050511
  Transmission Date: 20051028
  Serious: Yes (Hospitalization)
  Sender: FDA-Public Use
  Company Number: US-AMGEN-US133494

PATIENT
  Sex: Male

DRUGS (4)
  1. EPOGEN [Suspect]
     Indication: RENAL FAILURE CHRONIC
     Dates: start: 20030101
  2. ASPIRIN [Concomitant]
  3. DIOVAN [Concomitant]
  4. HYDROCHLOROTHIAZIDE [Concomitant]

REACTIONS (5)
  - BLOOD CREATININE INCREASED [None]
  - DEHYDRATION [None]
  - DYSPNOEA EXERTIONAL [None]
  - REFUSAL OF TREATMENT BY PATIENT [None]
  - RIB FRACTURE [None]
